FAERS Safety Report 18946575 (Version 1)
Quarter: 2021Q1

REPORT INFORMATION
  Report Type: Spontaneous
  Country: US (occurrence: US)
  Receive Date: 20210226
  Receipt Date: 20210226
  Transmission Date: 20210420
  Serious: Yes (Hospitalization)
  Sender: FDA-Public Use
  Company Number: US-FRESENIUS KABI-FK202101802

PATIENT
  Age: 69 Year
  Sex: Female
  Weight: 75 kg

DRUGS (21)
  1. PANTOPRAZOLE SODIUM SESQUIHYDRATE [Concomitant]
     Active Substance: PANTOPRAZOLE SODIUM
     Indication: PRODUCT USED FOR UNKNOWN INDICATION
     Dosage: PANTOPRAZOLE SODIUM SESQUIHYDRATE TABLET
     Route: 065
  2. RALOXIFENE HYDROCHLORIDE. [Concomitant]
     Active Substance: RALOXIFENE HYDROCHLORIDE
     Indication: PRODUCT USED FOR UNKNOWN INDICATION
     Dosage: RALOXIFENE HYDROCHLORIDE TABLET
     Route: 065
  3. LEVOTHYROXINE. [Concomitant]
     Active Substance: LEVOTHYROXINE
     Indication: PRODUCT USED FOR UNKNOWN INDICATION
     Dosage: LEVOTHYROXINE TABLET
     Route: 065
  4. LEUCOVORIN CALCIUM (MANUFACTURER UNKNOWN) [Suspect]
     Active Substance: LEUCOVORIN CALCIUM
     Indication: GASTROOESOPHAGEAL CANCER
     Dosage: LEUCOVORIN (CALCIUM FOLINATE) INFUSION?736 MG, EVERY 2 WEEKS (400MG/M2)
     Route: 042
     Dates: start: 20191011
  5. FERROUS SULFATE. [Concomitant]
     Active Substance: FERROUS SULFATE
     Indication: PRODUCT USED FOR UNKNOWN INDICATION
     Dosage: FERROUS SULFATE TABLET
     Route: 065
  6. NO DRUG NAME [Suspect]
     Active Substance: UNSPECIFIED INGREDIENT
     Indication: GASTROOESOPHAGEAL CANCER
     Dosage: IMAB362 BLINDED (CODE NOT BROKEN)?EVERY 3 WEEKS
     Route: 042
     Dates: start: 20191011
  7. FLUOROURACIL. [Suspect]
     Active Substance: FLUOROURACIL
     Dosage: FLUOROURACIL INFUSION ?4152 MG, EVERY 2 WEEKS (2400MG/M2)
     Route: 042
  8. AMLODIPINE BESILATE [Concomitant]
     Active Substance: AMLODIPINE BESYLATE
     Indication: PRODUCT USED FOR UNKNOWN INDICATION
     Dosage: UPON DISCHARGE THE PATIENT WAS ASKED TO STOP AMLODIPINE (NORVASC) 5 MG
     Route: 065
  9. FLUOROURACIL. [Suspect]
     Active Substance: FLUOROURACIL
     Indication: GASTROOESOPHAGEAL CANCER
     Dosage: FLUOROURACIL INFUSION ?4152 MG, EVERY 2 WEEKS (2400MG/M2)
     Route: 042
     Dates: start: 20191011
  10. OXALIPLATIN. [Suspect]
     Active Substance: OXALIPLATIN
     Dosage: OXALIPLATIN INFUSION ?112.45 MG, EVERY 3 WEEKS (65MG/M2)
     Route: 042
  11. PARACETAMOL/HYDROCODONE BITARTRATE [Concomitant]
     Active Substance: ACETAMINOPHEN\HYDROCODONE BITARTRATE
     Dosage: (HYDROCODONE BITARTRATE, PARACETAMOL) TABLET?NORCO 5?325MG Q6HRS AS NEEDED
     Route: 065
  12. ACETYLSALICYLIC ACID [Concomitant]
     Active Substance: ASPIRIN
     Indication: PRODUCT USED FOR UNKNOWN INDICATION
     Route: 065
  13. POTASSIUM CHLORIDE. [Concomitant]
     Active Substance: POTASSIUM CHLORIDE
     Indication: PRODUCT USED FOR UNKNOWN INDICATION
     Dosage: K?DUR (POTASSIUM CHLORIDE) TABLET
     Route: 065
  14. OXALIPLATIN. [Suspect]
     Active Substance: OXALIPLATIN
     Indication: GASTROOESOPHAGEAL CANCER
     Dosage: OXALIPLATIN INFUSION ?112.45 MG, EVERY 3 WEEKS (65MG/M2)
     Route: 042
     Dates: start: 20191011
  15. LEUCOVORIN CALCIUM (MANUFACTURER UNKNOWN) [Suspect]
     Active Substance: LEUCOVORIN CALCIUM
     Dosage: LEUCOVORIN (CALCIUM FOLINATE) INFUSION?736 MG, EVERY 2 WEEKS (400MG/M2)
     Route: 042
  16. METOPROLOL SUCCINATE. [Concomitant]
     Active Substance: METOPROLOL SUCCINATE
     Indication: PRODUCT USED FOR UNKNOWN INDICATION
     Dosage: TOPROL XL (METOPROLOL SUCCINATE) TABLET
     Route: 065
  17. NO DRUG NAME [Suspect]
     Active Substance: UNSPECIFIED INGREDIENT
     Dosage: IMAB362 BLINDED (CODE NOT BROKEN)?EVERY 3 WEEKS
     Route: 042
  18. PARACETAMOL/HYDROCODONE BITARTRATE [Concomitant]
     Active Substance: ACETAMINOPHEN\HYDROCODONE BITARTRATE
     Indication: BACK PAIN
     Dosage: NORCO (ACETAMINOPHEN AND HYDROCODONE) 2 TABLETS OF 325 MG, ORALLY FOR EVERY 6 HOURS
     Route: 048
     Dates: start: 20191010, end: 20191011
  19. SENNOSIDE A+B/DOCUSATE SODIUM [Concomitant]
     Indication: PRODUCT USED FOR UNKNOWN INDICATION
     Dosage: DOCUSATE SODIUM, SENNOSIDE A+B TABLET
     Route: 065
  20. ONDANSETRON [Concomitant]
     Active Substance: ONDANSETRON
     Indication: PRODUCT USED FOR UNKNOWN INDICATION
     Dosage: ZOFRAN (ONDANSETRON) TABLET
     Route: 065
  21. PROCHLORPERAZINE. [Concomitant]
     Active Substance: PROCHLORPERAZINE
     Indication: PRODUCT USED FOR UNKNOWN INDICATION
     Dosage: PROCHLORPERAZINE TABLET
     Route: 065

REACTIONS (5)
  - Diarrhoea [Unknown]
  - Decreased appetite [Unknown]
  - Dysphagia [Unknown]
  - Febrile neutropenia [Unknown]
  - Back pain [Recovering/Resolving]

NARRATIVE: CASE EVENT DATE: 20191028
